FAERS Safety Report 5963156-5 (Version None)
Quarter: 2008Q4

REPORT INFORMATION
  Report Type: 
  Country: None (occurrence: None)
  Receive Date: 20081119
  Receipt Date: 20080801
  Transmission Date: 20090506
  Serious: No
  Sender: FDA-Public Use
  Company Number: WAES 0808USA00209

PATIENT
  Age: 62 Year
  Sex: Female
  Weight: 136.0791 kg

DRUGS (9)
  1. JANUVIA [Suspect]
     Indication: TYPE 2 DIABETES MELLITUS
     Dosage: 100 MG/DAILY/PO
     Route: 048
     Dates: start: 20080728, end: 20080801
  2. OMNICEF [Concomitant]
  3. ZOLOFT [Concomitant]
  4. ATENOLOL [Concomitant]
  5. GLYBURIDE [Concomitant]
  6. HYDROCHLOROTHIAZIDE [Concomitant]
  7. METFORMIN HCL [Concomitant]
  8. NIFEDIPINE [Concomitant]
  9. OMEGA-3 MARINE TRIGLYCERIDES [Concomitant]

REACTIONS (3)
  - ABDOMINAL PAIN [None]
  - ERUCTATION [None]
  - HYPERCHLORHYDRIA [None]
